FAERS Safety Report 4969107-4 (Version None)
Quarter: 2006Q2

REPORT INFORMATION
  Report Type: 
  Country: None (occurrence: None)
  Receive Date: 20060411
  Receipt Date: 20050120
  Transmission Date: 20061013
  Serious: Yes (Other)
  Sender: FDA-Public Use
  Company Number: US-BRISTOL-MYERS SQUIBB COMPANY-12832242

PATIENT
  Age: 67 Year
  Sex: Female

DRUGS (22)
  1. PARAPLATIN [Suspect]
     Indication: NEOPLASM MALIGNANT
     Route: 042
     Dates: start: 20050111, end: 20050111
  2. CARBOPLATIN [Suspect]
     Indication: NEOPLASM MALIGNANT
     Dosage: 2 VIALS/150 MG EACH
     Route: 042
     Dates: start: 20050111, end: 20050111
  3. GLUCOSAMINE [Concomitant]
     Route: 048
  4. CALCIUM GLUCONATE [Concomitant]
     Route: 048
  5. PAXIL CR [Concomitant]
  6. ALLEGRA [Concomitant]
  7. LOTREL [Concomitant]
     Dosage: 5/20 MG
     Route: 048
  8. CELEBREX [Concomitant]
  9. NEXIUM [Concomitant]
     Route: 048
  10. GERITOL [Concomitant]
  11. DARVOCET-N 100 [Concomitant]
     Dosage: 100/650 MG
  12. ADVAIR DISKUS 100/50 [Concomitant]
     Dosage: 100/5. MICROGRAMS
     Route: 055
  13. VITAMIN B COMPLEX CAP [Concomitant]
  14. PREDNISONE [Concomitant]
     Route: 048
  15. ULTRACET [Concomitant]
     Dosage: 37.5/325 MG; TABS
     Route: 048
  16. KYTRIL [Concomitant]
  17. DECADRON [Concomitant]
  18. BENADRYL [Concomitant]
  19. TAGAMET [Concomitant]
  20. TAXOL [Concomitant]
  21. SOLU-CORTEF [Concomitant]
  22. CARBOPLATIN [Concomitant]

REACTIONS (2)
  - DYSPNOEA [None]
  - FLUSHING [None]
